FAERS Safety Report 6057717-5 (Version None)
Quarter: 2009Q1

REPORT INFORMATION
  Report Type: 
  Country: None (occurrence: None)
  Receive Date: 20090121
  Receipt Date: 20080320
  Transmission Date: 20090719
  Serious: Yes (Other)
  Sender: FDA-Public Use
  Company Number: HQWYE801607APR05

PATIENT
  Age: 57 Year
  Sex: Female

DRUGS (5)
  1. PREMPRO [Suspect]
     Indication: HORMONE REPLACEMENT THERAPY
     Dates: start: 19940101, end: 20020101
  2. ESTROGENS SOL/INJ [Suspect]
  3. PREMARIN [Suspect]
     Indication: OESTROGEN REPLACEMENT THERAPY
     Dates: start: 19870216
  4. PROGESTERONE [Suspect]
  5. PROVERA [Concomitant]
     Indication: HORMONE REPLACEMENT THERAPY
     Dates: start: 19870216

REACTIONS (1)
  - BREAST CANCER [None]
